FAERS Safety Report 19130968 (Version 4)
Quarter: 2022Q4

REPORT INFORMATION
  Report Type: Spontaneous
  Country: FR (occurrence: FR)
  Receive Date: 20210414
  Receipt Date: 20221020
  Transmission Date: 20230113
  Serious: Yes (Hospitalization, Other)
  Sender: FDA-Public Use
  Company Number: FR-SUN PHARMACEUTICAL INDUSTRIES LTD-2021R1-291064

PATIENT
  Age: 53 Year
  Sex: Male

DRUGS (6)
  1. PANTOPRAZOLE [Suspect]
     Active Substance: PANTOPRAZOLE
     Indication: Hepatic artery stenosis
     Dosage: 20 MILLIGRAM, DAILY
     Route: 065
     Dates: start: 2019
  2. TACROLIMUS [Suspect]
     Active Substance: TACROLIMUS
     Indication: Immunosuppression
     Dosage: UNK
     Route: 065
  3. EVEROLIMUS [Suspect]
     Active Substance: EVEROLIMUS
     Indication: Immunosuppression
     Route: 065
  4. UNSPECIFIED INGREDIENT [Concomitant]
     Active Substance: UNSPECIFIED INGREDIENT
     Indication: Hepatic artery stenosis
     Dosage: 75 MILLIGRAM
     Route: 065
     Dates: start: 2019
  5. CEFTRIAXONE [Concomitant]
     Active Substance: CEFTRIAXONE
     Indication: Arthritis bacterial
     Dosage: 2 GRAM, DAILY
     Route: 042
  6. PREDNISONE [Concomitant]
     Active Substance: PREDNISONE
     Indication: Oligoarthritis
     Dosage: 20 MILLIGRAM, DAILY
     Route: 048

REACTIONS (8)
  - Chondrocalcinosis [Recovered/Resolved]
  - Overdose [Unknown]
  - Hypomagnesaemia [Unknown]
  - Oligoarthritis [Recovered/Resolved]
  - Product administration error [Recovered/Resolved]
  - Intervertebral discitis [Recovered/Resolved]
  - Condition aggravated [Recovered/Resolved]
  - Drug level increased [Recovered/Resolved]
